FAERS Safety Report 14472530 (Version 1)
Quarter: 2018Q1

REPORT INFORMATION
  Report Type: Spontaneous
  Country: DE (occurrence: DE)
  Receive Date: 20180201
  Receipt Date: 20180201
  Transmission Date: 20180509
  Serious: Yes (Hospitalization, Other)
  Sender: FDA-Public Use
  Company Number: PHHY2017DE185311

PATIENT
  Age: 38 Year
  Sex: Female

DRUGS (1)
  1. VALPROIC ACID. [Suspect]
     Active Substance: VALPROIC ACID
     Indication: BIPOLAR DISORDER
     Dosage: 1800 MG, UNK
     Route: 065

REACTIONS (11)
  - Visual impairment [Unknown]
  - Dizziness [Unknown]
  - Sleep disorder [Unknown]
  - Overdose [Unknown]
  - Impulsive behaviour [Recovered/Resolved]
  - Depression [Recovered/Resolved]
  - Weight increased [Unknown]
  - Withdrawal syndrome [Recovered/Resolved]
  - Drug level increased [Recovered/Resolved]
  - Suicidal ideation [Recovered/Resolved]
  - Headache [Unknown]
